FAERS Safety Report 17072650 (Version 1)
Quarter: 2019Q4

REPORT INFORMATION
  Report Type: Spontaneous
  Country: NL (occurrence: NL)
  Receive Date: 20191125
  Receipt Date: 20191125
  Transmission Date: 20200122
  Serious: Yes (Hospitalization)
  Sender: FDA-Public Use
  Company Number: NL-MYLANLABS-2019M1113123

PATIENT
  Age: 59 Year
  Sex: Female
  Weight: 85.3 kg

DRUGS (12)
  1. COLECALCIFEROL [Concomitant]
     Active Substance: CHOLECALCIFEROL
     Dosage: ORAAL, 1X PER 4 WKN
     Route: 048
  2. TRAMADOL. [Concomitant]
     Active Substance: TRAMADOL
     Dosage: ORAAL, 3DD (PATI?NT NEEMT DIT ANDERS IN: 50 MG, ORAAL, ZONODIG 3X
     Route: 048
  3. LOSARTAN. [Concomitant]
     Active Substance: LOSARTAN
     Dosage: ORAAL, VOOR DE NACHT
     Route: 048
  4. DEXAMETHASON                       /00016001/ [Concomitant]
     Active Substance: DEXAMETHASONE
     Dosage: ORAAL, 1DD
     Route: 048
  5. OXALIPLATIN. [Suspect]
     Active Substance: OXALIPLATIN
     Indication: COLON CANCER
     Dosage: 250 MG IN GLUCOSE 5% 550 ML INFUUS IEDERE 3 WEKEN
     Route: 042
     Dates: start: 20190522
  6. METOCLOPRAMIDE. [Concomitant]
     Active Substance: METOCLOPRAMIDE
     Dosage: ORAAL, ZN 3DD
     Route: 048
  7. OMEPRAZOL                          /00661201/ [Concomitant]
     Active Substance: OMEPRAZOLE
     Dosage: ORAAL, 1DD (PATI?NT NEEMT DIT ANDERS IN: 40 MG, ORAAL, 1X PER DAG, INDICATIES: CG)
     Route: 048
  8. KALIUMCHLORIDE [Concomitant]
     Dosage: ORAAL, 3DD
     Route: 048
  9. GLUCOSE [Concomitant]
     Active Substance: DEXTROSE
     Dosage: 550 ML INFUUS IEDERE 3 WEKEN
  10. CETOMACROGOL [Concomitant]
     Active Substance: COSMETICS
     Dosage: 4X PER DAG CUTAAN NA OPENEN 1 JAAR HOUDBAAR; LEES
     Route: 003
  11. CAPECITABINE. [Concomitant]
     Active Substance: CAPECITABINE
     Dosage: ORAAL, 2DD
     Route: 048
  12. PARACETAMOL [Concomitant]
     Active Substance: ACETAMINOPHEN
     Dosage: ORAAL, ZN 3DD
     Route: 048

REACTIONS (4)
  - Muscle spasms [Recovered/Resolved]
  - Dizziness [Unknown]
  - Muscular weakness [Recovered/Resolved]
  - Hypoaesthesia [Unknown]

NARRATIVE: CASE EVENT DATE: 20190522
